FAERS Safety Report 5928862-7 (Version None)
Quarter: 2008Q4

REPORT INFORMATION
  Report Type: 
  Country: None (occurrence: None)
  Receive Date: 20081020
  Receipt Date: 20081003
  Transmission Date: 20090506
  Serious: Yes (Hospitalization)
  Sender: FDA-Public Use
  Company Number: DSA_32491_2008

PATIENT
  Sex: Female

DRUGS (4)
  1. LORAZEPAM [Suspect]
     Dosage: (NOT THE PRESCRIBED AMOUNT ORAL)
     Route: 048
     Dates: start: 20081002, end: 20081002
  2. VENLAFAXINE HYDROCHLORIDE [Suspect]
     Dosage: (NOT THE PRESCRIBED AMOUNT ORAL)
     Route: 048
     Dates: start: 20081002, end: 20081002
  3. TRUXAL /00012102/ (TRUXAL - CHLORPROTHIEXENE HYDROCHLORIDE) (NOT SPECI [Suspect]
     Dosage: (NOT THE PRESCRIBED AMOUNT ORAL)
     Route: 048
     Dates: start: 20081002, end: 20081002
  4. ALCOHOL (ALCOHOL - ETHANOL) [Suspect]
     Dosage: (UNKNOWN AMOUNT ORAL)
     Route: 048
     Dates: start: 20081002, end: 20081002

REACTIONS (5)
  - GASTROINTESTINAL SOUNDS ABNORMAL [None]
  - HYPOTENSION [None]
  - MULTIPLE DRUG OVERDOSE INTENTIONAL [None]
  - SOPOR [None]
  - SUICIDE ATTEMPT [None]
